FAERS Safety Report 19375547 (Version 5)
Quarter: 2021Q4

REPORT INFORMATION
  Report Type: Spontaneous
  Country: CA (occurrence: CA)
  Receive Date: 20210604
  Receipt Date: 20211129
  Transmission Date: 20220303
  Serious: Yes (Other)
  Sender: FDA-Public Use
  Company Number: CA-VERTEX PHARMACEUTICALS-2021-001050

PATIENT
  Age: 10 Year
  Sex: Male
  Weight: 35 kg

DRUGS (10)
  1. ORKAMBI [Suspect]
     Active Substance: IVACAFTOR\LUMACAFTOR
     Indication: Cystic fibrosis
     Dosage: 02 DOSAGE FORM, BID
     Route: 048
     Dates: start: 20180423, end: 20210120
  2. ORKAMBI [Suspect]
     Active Substance: IVACAFTOR\LUMACAFTOR
     Dosage: 2 DOSAGE FORM, BID
     Route: 048
     Dates: start: 20210628
  3. ORKAMBI [Suspect]
     Active Substance: IVACAFTOR\LUMACAFTOR
     Dosage: 1 UNK
     Route: 048
     Dates: start: 2021
  4. CREON [Concomitant]
     Active Substance: PANCRELIPASE AMYLASE\PANCRELIPASE LIPASE\PANCRELIPASE PROTEASE
     Dosage: CAPSULES
  5. ADVAIR HFA [Concomitant]
     Active Substance: FLUTICASONE PROPIONATE\SALMETEROL XINAFOATE
     Dosage: DISKUS
  6. ALBUTEROL [Concomitant]
     Active Substance: ALBUTEROL
     Dosage: LIQUID, INTRAVENOUS (NOT OTHERWISE SPECIFIED)
     Route: 042
  7. CHOLECALCIFEROL [Concomitant]
     Active Substance: CHOLECALCIFEROL
  8. VITAMIN E [Concomitant]
     Active Substance: .ALPHA.-TOCOPHEROL
     Dosage: LOTION
  9. MENADIONE [Concomitant]
     Active Substance: MENADIONE
  10. .ALPHA.-TOCOPHEROL, D- [Concomitant]
     Active Substance: .ALPHA.-TOCOPHEROL, D-

REACTIONS (2)
  - Cataract [Recovered/Resolved]
  - Forced expiratory volume decreased [Recovered/Resolved]

NARRATIVE: CASE EVENT DATE: 20210120
